FAERS Safety Report 9752256 (Version 1)
Quarter: 2013Q4

REPORT INFORMATION
  Report Type: Spontaneous
  Country: GB (occurrence: None)
  Receive Date: 20131211
  Receipt Date: 20131211
  Transmission Date: 20140711
  Serious: Yes (Life-Threatening, Hospitalization, Disabling)
  Sender: FDA-Public Use
  Company Number: 2011R1-47430

PATIENT
  Age: 30 Year
  Sex: Female
  Weight: 63.5 kg

DRUGS (2)
  1. DOMPERIDONE [Suspect]
     Indication: PRODUCT USED FOR UNKNOWN INDICATION
  2. CLONAZEPAM (CLONAZEPAM) (CLONAZEPAM) [Suspect]
     Indication: SEDATION
     Route: 048

REACTIONS (58)
  - Drug withdrawal syndrome [None]
  - Skin discolouration [None]
  - Decreased appetite [None]
  - Serotonin syndrome [None]
  - Pallor [None]
  - Paralysis [None]
  - Hypoaesthesia oral [None]
  - Neuroleptic malignant syndrome [None]
  - Schizophrenia [None]
  - Contusion [None]
  - Depression [None]
  - Convulsion [None]
  - Dissociation [None]
  - Delirium [None]
  - Dyspnoea [None]
  - Disturbance in attention [None]
  - Toxicity to various agents [None]
  - Swelling face [None]
  - Incontinence [None]
  - Sensory loss [None]
  - Mania [None]
  - Mood swings [None]
  - Muscle disorder [None]
  - Hypoaesthesia [None]
  - Paraesthesia [None]
  - Aphasia [None]
  - Suicidal ideation [None]
  - H1N1 influenza [None]
  - Urinary retention [None]
  - Visual impairment [None]
  - Gait disturbance [None]
  - Asthenia [None]
  - Depersonalisation [None]
  - Cyanosis [None]
  - Tinnitus [None]
  - Tachycardia [None]
  - Feeling of body temperature change [None]
  - Swollen tongue [None]
  - Muscle spasms [None]
  - Blood sodium decreased [None]
  - Vision blurred [None]
  - Drooling [None]
  - Emotional disorder [None]
  - Feeling of despair [None]
  - Derealisation [None]
  - Gastric pH decreased [None]
  - Arthralgia [None]
  - Feeling jittery [None]
  - Menstrual disorder [None]
  - Nightmare [None]
  - Eye pain [None]
  - Mydriasis [None]
  - Pruritus [None]
  - Restlessness [None]
  - Sleep disorder [None]
  - Parosmia [None]
  - Contusion [None]
  - Restless legs syndrome [None]
